FAERS Safety Report 5414782-3 (Version None)
Quarter: 2007Q3

REPORT INFORMATION
  Report Type: 
  Country: None (occurrence: None)
  Receive Date: 20070713
  Receipt Date: 20070519
  Transmission Date: 20080115
  Serious: Yes (Hospitalization)
  Sender: FDA-Public Use
  Company Number: US-JNJFOC-20060903682

PATIENT
  Age: 24 Year
  Sex: Female
  Weight: 63.5036 kg

DRUGS (6)
  1. ORTHO EVRA [Suspect]
     Indication: CONTRACEPTION
     Dosage: 1 DOSE(S), 3 IN 4 WEEK
     Dates: start: 20030101, end: 20041101
  2. TRIVORA (EUGYNON) TABLET [Suspect]
     Indication: DRUG USE FOR UNKNOWN INDICATION
     Dosage: 1 DOSE(S), 1 IN 1 DAY, ORAL
     Route: 048
     Dates: start: 20041101, end: 20041201
  3. ALBUTEROL [Concomitant]
  4. HYDROCHLOROTHIAZIDE (HYDROCHLOROTHIAZIDE) ORAL DROPS [Concomitant]
  5. ZOLOFT [Concomitant]
  6. AZITHROMYCIN (LEVOFLOXACIN COMPARATOR) TABLETS [Concomitant]

REACTIONS (1)
  - PULMONARY EMBOLISM [None]
